FAERS Safety Report 17560046 (Version 1)
Quarter: 2020Q1

REPORT INFORMATION
  Report Type: Spontaneous
  Country: GB (occurrence: GB)
  Receive Date: 20200319
  Receipt Date: 20200319
  Transmission Date: 20200409
  Serious: Yes (Hospitalization)
  Sender: FDA-Public Use
  Company Number: GB-ACCORD-175987

PATIENT
  Age: 46 Year
  Sex: Male

DRUGS (3)
  1. COCAINE [Concomitant]
     Active Substance: COCAINE
  2. HALOPERIDOL. [Concomitant]
     Active Substance: HALOPERIDOL
  3. AMITRIPTYLINE [Suspect]
     Active Substance: AMITRIPTYLINE
     Indication: PRODUCT USED FOR UNKNOWN INDICATION
     Dates: start: 20200222, end: 20200226

REACTIONS (7)
  - Sinus node dysfunction [Unknown]
  - Condition aggravated [Unknown]
  - Sleep apnoea syndrome [Unknown]
  - Atrioventricular block [Not Recovered/Not Resolved]
  - Sinus arrhythmia [Unknown]
  - Snoring [Unknown]
  - Somnolence [Unknown]

NARRATIVE: CASE EVENT DATE: 20200226
